FAERS Safety Report 9153846 (Version 1)
Quarter: 2013Q1

REPORT INFORMATION
  Report Type: Spontaneous
  Country: US (occurrence: None)
  Receive Date: 20130306
  Receipt Date: 20130306
  Transmission Date: 20140127
  Serious: No
  Sender: FDA-Public Use
  Company Number: None

PATIENT
  Sex: Female
  Weight: 50.3 kg

DRUGS (8)
  1. CABOZANTINIB S-MALATE [Suspect]
     Dates: end: 20130225
  2. GLIPIZIDE [Concomitant]
  3. METFORMIN [Concomitant]
  4. NAPROSYN [Concomitant]
  5. NORVASC [Concomitant]
  6. PROPANOLOL [Concomitant]
  7. SIMVASTATIN [Concomitant]
  8. SYNTHROID [Concomitant]

REACTIONS (1)
  - Blood phosphorus decreased [None]
